FAERS Safety Report 6640954-6 (Version None)
Quarter: 2010Q1

REPORT INFORMATION
  Report Type: 
  Country: None (occurrence: None)
  Receive Date: 20100318
  Receipt Date: 20100312
  Transmission Date: 20100710
  Serious: Yes (Life-Threatening, Hospitalization)
  Sender: FDA-Public Use
  Company Number: JP-EISAI INC.-E2090-01003-SPO-JP

PATIENT
  Sex: Male

DRUGS (8)
  1. EXCEGRAN [Suspect]
     Route: 048
     Dates: start: 20090501, end: 20090512
  2. URSO 250 [Concomitant]
     Route: 048
     Dates: start: 20090428, end: 20090602
  3. THYRADIN-S [Concomitant]
     Route: 048
     Dates: start: 20090420
  4. PHENOBARBITAL TAB [Concomitant]
     Indication: PROPHYLAXIS
     Route: 048
     Dates: start: 20090419, end: 20090423
  5. DEPAKENE [Concomitant]
     Indication: PROPHYLAXIS
     Route: 048
     Dates: start: 20090424, end: 20090507
  6. TOPINA [Concomitant]
     Indication: PROPHYLAXIS
     Route: 048
     Dates: start: 20090523, end: 20090529
  7. METHYLCOBAL [Concomitant]
     Route: 048
     Dates: start: 20090419, end: 20090512
  8. VOLTAREN [Concomitant]
     Indication: ANTIPYRESIS
     Route: 048
     Dates: start: 20090420, end: 20090426

REACTIONS (1)
  - TOXIC EPIDERMAL NECROLYSIS [None]
